FAERS Safety Report 4566137-1 (Version None)
Quarter: 2005Q1

REPORT INFORMATION
  Report Type: 
  Country: None (occurrence: None)
  Receive Date: 20050120
  Receipt Date: 20050120
  Transmission Date: 20050727
  Serious: Yes (Other)
  Sender: FDA-Public Use
  Company Number: None

PATIENT
  Age: 39 Year
  Sex: Male
  Weight: 86.637 kg

DRUGS (2)
  1. TEGRETOL [Suspect]
     Indication: EPILEPSY
     Dosage: TWO TABLETS AM; TWO TABLET PM, THREE TABS AT BEDTIME
     Dates: start: 20040202
  2. TEGRETOL [Suspect]
     Indication: EPILEPSY
     Dosage: TWO TABLETS AM; TWO TABLET PM, THREE TABS AT BEDTIME
     Dates: start: 20040315

REACTIONS (1)
  - CONVULSION [None]
